FAERS Safety Report 9227677 (Version 1)
Quarter: 2013Q2

REPORT INFORMATION
  Report Type: Spontaneous
  Country: US (occurrence: US)
  Receive Date: 20130412
  Receipt Date: 20130412
  Transmission Date: 20140414
  Serious: Yes (Hospitalization)
  Sender: FDA-Public Use
  Company Number: US-ELI_LILLY_AND_COMPANY-US201304003088

PATIENT
  Age: 41 Year
  Sex: Male
  Weight: 90.9 kg

DRUGS (12)
  1. ADCIRCA [Suspect]
     Indication: PULMONARY HYPERTENSION
     Dosage: 40 MG, QD
     Route: 048
     Dates: start: 20110927
  2. PREDNISONE [Concomitant]
     Dosage: 40 MG, QD
  3. METHOTREXATE [Concomitant]
     Dosage: 2.5 MG, WEEKLY (1/W)
  4. REMICADE [Concomitant]
     Dosage: UNK, MONTHLY (1/M)
  5. GUAIFENESIN [Concomitant]
  6. AUGMENTIN                               /SCH/ [Concomitant]
     Dosage: 875/125 MG
  7. CIPRO [Concomitant]
     Dosage: 500 MG, UNK
  8. FLEXERIL [Concomitant]
     Dosage: 10 MG, UNK
  9. FOLIC ACID [Concomitant]
     Dosage: 1 MG, UNK
  10. HYDROCODONE W/ACETAMINOPHEN [Concomitant]
     Dosage: 5/325 MG
  11. PROMETHAZINE W/CODEINE [Concomitant]
     Dosage: 6.25-10 MG/5ML
  12. BACTRIM [Concomitant]
     Dosage: 800-160

REACTIONS (2)
  - Pneumonia [Recovered/Resolved]
  - Systemic inflammatory response syndrome [Recovered/Resolved]
